FAERS Safety Report 8086822-7 (Version None)
Quarter: 2012Q1

REPORT INFORMATION
  Report Type: 
  Country: None (occurrence: None)
  Receive Date: 20120128
  Receipt Date: 20110519
  Transmission Date: 20120608
  Serious: No
  Sender: FDA-Public Use
  Company Number: US-ABBOTT-11P-163-0727054-00

PATIENT
  Sex: Female

DRUGS (8)
  1. HUMIRA [Suspect]
     Indication: RHEUMATOID ARTHRITIS
     Route: 058
     Dates: start: 20081023
  2. FLONASE [Concomitant]
     Indication: ALLERGIC SINUSITIS
     Route: 055
  3. PREVACID [Concomitant]
     Indication: PROPHYLAXIS
  4. IBUPROFEN [Concomitant]
     Indication: RHEUMATOID ARTHRITIS
     Route: 048
  5. NASACORT [Concomitant]
     Indication: ALLERGIC SINUSITIS
  6. LISINOPRIL [Concomitant]
     Indication: HYPERTENSION
  7. LOVAZA [Concomitant]
     Indication: SUPPLEMENTATION THERAPY
     Route: 048
  8. CLARINEX [Concomitant]
     Indication: ALLERGIC SINUSITIS

REACTIONS (2)
  - DRUG INEFFECTIVE [None]
  - ARTHRALGIA [None]
